FAERS Safety Report 5508999-7 (Version None)
Quarter: 2007Q4

REPORT INFORMATION
  Report Type: 
  Country: None (occurrence: None)
  Receive Date: 20071107
  Receipt Date: 20071026
  Transmission Date: 20080405
  Serious: Yes (Other)
  Sender: FDA-Public Use
  Company Number: JP-SANOFI-SYNTHELABO-F01200701371

PATIENT
  Sex: Male
  Weight: 67 kg

DRUGS (4)
  1. VANCOMIN [Concomitant]
     Dosage: 4500 MG
     Route: 048
     Dates: start: 20070823, end: 20070908
  2. RINLAXER [Concomitant]
     Dosage: 2250 MG
     Route: 048
     Dates: start: 20070823, end: 20070908
  3. SG [Concomitant]
     Dosage: 1 G
     Route: 048
     Dates: start: 20070308
  4. CLOPIDOGREL [Suspect]
     Indication: CEREBRAL ISCHAEMIA
     Route: 048
     Dates: start: 20070308, end: 20070908

REACTIONS (2)
  - ANAEMIA [None]
  - BLOOD LACTATE DEHYDROGENASE INCREASED [None]
